FAERS Safety Report 23567639 (Version 3)
Quarter: 2024Q3

REPORT INFORMATION
  Report Type: Spontaneous
  Country: CA (occurrence: CA)
  Receive Date: 20240226
  Receipt Date: 20240911
  Transmission Date: 20241016
  Serious: Yes (Hospitalization)
  Sender: CELLTRION
  Company Number: CA-CELLTRION INC.-2023CA002642

PATIENT

DRUGS (14)
  1. INFLECTRA [Suspect]
     Active Substance: INFLIXIMAB-DYYB
     Indication: Crohn^s disease
     Dosage: 1000 MG, W0 W2 W6 Q7WEEKS
     Route: 042
     Dates: start: 20230318
  2. INFLECTRA [Suspect]
     Active Substance: INFLIXIMAB-DYYB
     Dosage: 1000 MG, W0 W2 W6 Q7WEEKS
     Route: 042
     Dates: start: 20230429
  3. INFLECTRA [Suspect]
     Active Substance: INFLIXIMAB-DYYB
     Dosage: 1000 MG, Q7 WEEKS
     Route: 042
     Dates: start: 20230612
  4. INFLECTRA [Suspect]
     Active Substance: INFLIXIMAB-DYYB
     Dosage: 1000 MG AFTER 6 WEEKS AND 5 DAYS
     Route: 042
     Dates: start: 20230729
  5. INFLECTRA [Suspect]
     Active Substance: INFLIXIMAB-DYYB
     Dosage: 1000 MG AFTER 6 WEEKS AND 5 DAYS
     Route: 042
     Dates: start: 20230729
  6. INFLECTRA [Suspect]
     Active Substance: INFLIXIMAB-DYYB
     Dosage: 1000 MG AFTER 6 WEEKS AND 5 DAYS
     Route: 042
     Dates: start: 20230729
  7. INFLECTRA [Suspect]
     Active Substance: INFLIXIMAB-DYYB
     Dosage: 1000MG, 8 WEEKS
     Route: 042
     Dates: start: 20230923
  8. INFLECTRA [Suspect]
     Active Substance: INFLIXIMAB-DYYB
     Dosage: 1000 MG W0, W2, W6 AND Q7 WEEKS
     Route: 042
     Dates: start: 20231104
  9. INFLECTRA [Suspect]
     Active Substance: INFLIXIMAB-DYYB
     Dosage: 1000 MG AFTER 9 WEEKS W0, W2, W6 AND Q7 WEEKS
     Route: 042
     Dates: start: 20240106, end: 20240106
  10. INFLECTRA [Suspect]
     Active Substance: INFLIXIMAB-DYYB
     Dosage: 1000 MG AFTER 6 WEEKS, PRECRIBED EVERY Q7 WEEKS
     Route: 042
     Dates: start: 20240217
  11. INFLECTRA [Suspect]
     Active Substance: INFLIXIMAB-DYYB
     Dosage: 1000 MG W0, W2, W6 AND Q7 WEEKS (AFTER 7 WEEKS)
     Route: 042
     Dates: start: 20240406
  12. INFLECTRA [Suspect]
     Active Substance: INFLIXIMAB-DYYB
     Dosage: 1000 MG W0, W2, W6 AND Q7 WEEKS (AFTER 7 WEEKS)
     Route: 042
     Dates: start: 20240713
  13. INFLECTRA [Suspect]
     Active Substance: INFLIXIMAB-DYYB
     Dosage: 1000 MG W0, W2, W6 AND Q7 WEEKS (AFTER 7 WEEKS)
     Route: 042
     Dates: start: 20240831
  14. ATIVAN [Concomitant]
     Active Substance: LORAZEPAM
     Dosage: UNK

REACTIONS (13)
  - Gastrointestinal haemorrhage [Recovered/Resolved]
  - Faeces discoloured [Recovered/Resolved]
  - Vomiting [Recovered/Resolved]
  - Condition aggravated [Not Recovered/Not Resolved]
  - Suspected COVID-19 [Recovered/Resolved]
  - Abdominal pain [Recovered/Resolved]
  - Pyrexia [Recovered/Resolved]
  - Oropharyngeal pain [Recovered/Resolved]
  - Diarrhoea [Recovered/Resolved]
  - Off label use [Unknown]
  - Off label use [Unknown]
  - Intentional product use issue [Unknown]
  - Inappropriate schedule of product administration [Unknown]

NARRATIVE: CASE EVENT DATE: 20230612
